FAERS Safety Report 7272603-0 (Version None)
Quarter: 2011Q1

REPORT INFORMATION
  Report Type: 
  Country: None (occurrence: None)
  Receive Date: 20110203
  Receipt Date: 20110121
  Transmission Date: 20110831
  Serious: Yes (Other)
  Sender: FDA-Public Use
  Company Number: DE-ROCHE-756818

PATIENT
  Age: 6 Year
  Sex: Male
  Weight: 31 kg

DRUGS (1)
  1. TAMIFLU [Suspect]
     Route: 048
     Dates: start: 20110118

REACTIONS (2)
  - AGGRESSION [None]
  - ANXIETY [None]
